FAERS Safety Report 8389177-3 (Version None)
Quarter: 2012Q2

REPORT INFORMATION
  Report Type: 
  Country: None (occurrence: None)
  Receive Date: 20120528
  Receipt Date: 20120524
  Transmission Date: 20120825
  Serious: Yes (Other)
  Sender: FDA-Public Use
  Company Number: PHFR2012GB003157

PATIENT

DRUGS (1)
  1. TEGRETOL [Suspect]

REACTIONS (1)
  - HIV INFECTION [None]
